FAERS Safety Report 5830923-8 (Version None)
Quarter: 2008Q3

REPORT INFORMATION
  Report Type: 
  Country: None (occurrence: None)
  Receive Date: 20080801
  Receipt Date: 20080204
  Transmission Date: 20090109
  Serious: No
  Sender: FDA-Public Use
  Company Number: US-BRISTOL-MYERS SQUIBB COMPANY-14064463

PATIENT
  Age: 66 Year
  Sex: Male
  Weight: 91 kg

DRUGS (4)
  1. COUMADIN [Suspect]
     Indication: PULMONARY EMBOLISM
     Dosage: INCREASED TO 10MG-25JAN08-30JAN08; INCREASED TO 15MG; 5 MG ON 2FEB08; NO DOSE ON 3FEB08.
     Dates: start: 20080124
  2. LISINOPRIL [Concomitant]
  3. FOLIC ACID [Concomitant]
  4. ASCORBIC ACID [Concomitant]

REACTIONS (1)
  - INTERNATIONAL NORMALISED RATIO FLUCTUATION [None]
